FAERS Safety Report 7073411-6 (Version None)
Quarter: 2010Q4

REPORT INFORMATION
  Report Type: 
  Country: None (occurrence: None)
  Receive Date: 20101029
  Receipt Date: 20100614
  Transmission Date: 20110411
  Serious: No
  Sender: FDA-Public Use
  Company Number: A0865013A

PATIENT
  Age: 78 Year
  Sex: Female

DRUGS (5)
  1. ADVAIR DISKUS 100/50 [Suspect]
     Indication: CHRONIC OBSTRUCTIVE PULMONARY DISEASE
     Dosage: 1PUFF TWICE PER DAY
     Route: 055
     Dates: start: 20080101
  2. ALBUTEROL [Suspect]
  3. PREDNISONE [Concomitant]
  4. MULTI-VITAMIN [Concomitant]
  5. VITAMINS [Concomitant]

REACTIONS (2)
  - PALPITATIONS [None]
  - TREMOR [None]
